FAERS Safety Report 6527310-6 (Version None)
Quarter: 2010Q1

REPORT INFORMATION
  Report Type: 
  Country: None (occurrence: None)
  Receive Date: 20100105
  Receipt Date: 20090305
  Transmission Date: 20100710
  Serious: No
  Sender: FDA-Public Use
  Company Number: US-TYCO HEALTHCARE/MALLINCKRODT-T200900655

PATIENT
  Sex: Female
  Weight: 54.422 kg

DRUGS (1)
  1. OPTIMARK [Suspect]
     Indication: ARTHROGRAM
     Dosage: UNK
     Route: 014
     Dates: start: 20090305, end: 20090305

REACTIONS (3)
  - DRUG ADMINISTRATION ERROR [None]
  - NUCLEAR MAGNETIC RESONANCE IMAGING ABNORMAL [None]
  - OFF LABEL USE [None]
